FAERS Safety Report 24897594 (Version 2)
Quarter: 2025Q1

REPORT INFORMATION
  Report Type: Spontaneous
  Country: JP (occurrence: JP)
  Receive Date: 20250129
  Receipt Date: 20250219
  Transmission Date: 20250409
  Serious: Yes (Death, Other)
  Sender: ASTELLAS
  Company Number: JP-ASTELLAS-2025-AER-005519

PATIENT
  Age: 76 Year
  Sex: Male

DRUGS (1)
  1. CRESEMBA [Suspect]
     Active Substance: ISAVUCONAZONIUM SULFATE
     Indication: Aspergillus infection
     Dosage: QD
     Route: 048
     Dates: start: 20241002

REACTIONS (1)
  - Asphyxia [Fatal]

NARRATIVE: CASE EVENT DATE: 20241210
